FAERS Safety Report 5761010-5 (Version None)
Quarter: 2008Q2

REPORT INFORMATION
  Report Type: 
  Country: None (occurrence: None)
  Receive Date: 20080606
  Receipt Date: 20080529
  Transmission Date: 20081010
  Serious: Yes (Hospitalization)
  Sender: FDA-Public Use
  Company Number: DE-ASTRAZENECA-2008PK01186

PATIENT
  Sex: Male

DRUGS (2)
  1. SEROQUEL PROLONG [Suspect]
     Route: 048
  2. HALOPERIDOL [Suspect]
     Route: 048

REACTIONS (1)
  - LEUKOPENIA [None]
